FAERS Safety Report 4362325-8 (Version None)
Quarter: 2004Q2

REPORT INFORMATION
  Report Type: 
  Country: None (occurrence: None)
  Receive Date: 20040520
  Receipt Date: 20040520
  Transmission Date: 20050107
  Serious: Yes (Hospitalization)
  Sender: FDA-Public Use
  Company Number: None

PATIENT
  Sex: Female
  Weight: 73.9363 kg

DRUGS (1)
  1. PHENYTOIN [Suspect]
     Dosage: 200 MG PO BID
     Route: 048

REACTIONS (2)
  - DRUG TOXICITY [None]
  - FALL [None]
